FAERS Safety Report 5836209-X (Version None)
Quarter: 2008Q3

REPORT INFORMATION
  Report Type: 
  Country: None (occurrence: None)
  Receive Date: 20080805
  Receipt Date: 20080731
  Transmission Date: 20090109
  Serious: Yes (Death, Other)
  Sender: FDA-Public Use
  Company Number: 2008SP015719

PATIENT
  Sex: Male

DRUGS (1)
  1. INTERFERON [Suspect]
     Indication: HEPATITIS C

REACTIONS (4)
  - EAR HAEMORRHAGE [None]
  - EPISTAXIS [None]
  - MOUTH HAEMORRHAGE [None]
  - WAIST CIRCUMFERENCE INCREASED [None]
